FAERS Safety Report 6235048-8 (Version None)
Quarter: 2009Q2

REPORT INFORMATION
  Report Type: 
  Country: None (occurrence: None)
  Receive Date: 20090615
  Receipt Date: 20090603
  Transmission Date: 20091009
  Serious: Yes (Other)
  Sender: FDA-Public Use
  Company Number: B0576195A

PATIENT

DRUGS (2)
  1. LAPATINIB (FORMULATION UNKNOWN) (GENERIC) (LAPATINIB) [Suspect]
     Indication: BREAST CANCER METASTATIC
  2. EPIRUBICIN [Suspect]
     Indication: BREAST CANCER METASTATIC
     Dosage: 80 MG/M2 / THREE TIMES PER WEEK

REACTIONS (2)
  - DRUG TOXICITY [None]
  - FEBRILE NEUTROPENIA [None]
